FAERS Safety Report 20920867 (Version 1)
Quarter: 2022Q2

REPORT INFORMATION
  Report Type: Spontaneous
  Country: US (occurrence: None)
  Receive Date: 20220606
  Receipt Date: 20220606
  Transmission Date: 20220721
  Serious: Yes (Death)
  Sender: FDA-Public Use
  Company Number: None

PATIENT
  Age: 77 Year
  Sex: Female
  Weight: 67.54 kg

DRUGS (14)
  1. CAPECITABINE [Suspect]
     Active Substance: CAPECITABINE
     Indication: Breast cancer female
     Dosage: FREQUENCY : TWICE A DAY;?
     Route: 048
  2. ALPRAOLAM [Concomitant]
  3. ATORVASTATIN [Concomitant]
  4. BUPROPION  HCI [Concomitant]
  5. PERIDEX MOUTH/THROAT SOLUTION [Concomitant]
  6. CYANOCOBALAMIN [Concomitant]
  7. FLUTICASONE LEVOTHYROXINE [Concomitant]
  8. MULTIPLE VITAMIN [Concomitant]
  9. NAPROXEN [Concomitant]
  10. PROPRANOLOL [Concomitant]
  11. TRAZODONE [Concomitant]
  12. VENLAFAXINE [Concomitant]
  13. FENTANYL [Concomitant]
  14. OXYCONTIN [Concomitant]

REACTIONS (1)
  - Death [None]
